FAERS Safety Report 18891415 (Version 1)
Quarter: 2021Q1

REPORT INFORMATION
  Report Type: Spontaneous
  Country: JP (occurrence: JP)
  Receive Date: 20210215
  Receipt Date: 20210215
  Transmission Date: 20210420
  Serious: Yes (Hospitalization)
  Sender: FDA-Public Use
  Company Number: JP-EPICPHARMA-JP-2021EPCLIT00136

PATIENT
  Age: 73 Year
  Sex: Male

DRUGS (15)
  1. MAGNESIUM OXIDE. [Concomitant]
     Active Substance: MAGNESIUM OXIDE
     Indication: PRODUCT USED FOR UNKNOWN INDICATION
     Route: 065
  2. CISPLATIN. [Interacting]
     Active Substance: CISPLATIN
     Indication: SQUAMOUS CELL CARCINOMA OF LUNG
     Route: 042
  3. GEMCITABINE. [Interacting]
     Active Substance: GEMCITABINE
     Indication: SQUAMOUS CELL CARCINOMA OF LUNG
     Route: 042
  4. PALONOSETRON. [Interacting]
     Active Substance: PALONOSETRON HYDROCHLORIDE
     Indication: NAUSEA
     Route: 065
  5. AMLODIPINE [Suspect]
     Active Substance: AMLODIPINE BESYLATE
     Indication: PRODUCT USED FOR UNKNOWN INDICATION
     Route: 048
  6. DEXAMETHASONE. [Interacting]
     Active Substance: DEXAMETHASONE
     Indication: VOMITING
  7. RANITIDINE. [Concomitant]
     Active Substance: RANITIDINE
     Indication: PRODUCT USED FOR UNKNOWN INDICATION
     Route: 065
  8. CANDESARTAN. [Concomitant]
     Active Substance: CANDESARTAN
     Indication: PRODUCT USED FOR UNKNOWN INDICATION
     Route: 065
  9. PALONOSETRON. [Interacting]
     Active Substance: PALONOSETRON HYDROCHLORIDE
     Indication: VOMITING
  10. DEXAMETHASONE. [Interacting]
     Active Substance: DEXAMETHASONE
     Indication: NAUSEA
     Route: 065
  11. ATORVASTATIN [Concomitant]
     Active Substance: ATORVASTATIN
     Indication: PRODUCT USED FOR UNKNOWN INDICATION
     Route: 065
  12. APREPITANT. [Suspect]
     Active Substance: APREPITANT
     Indication: NAUSEA
     Route: 048
  13. SENNA LEAF [Concomitant]
     Active Substance: SENNA LEAF
  14. APREPITANT. [Suspect]
     Active Substance: APREPITANT
     Indication: VOMITING
     Route: 048
  15. ACETYLSALICYLIC ACID [Concomitant]
     Active Substance: ASPIRIN
     Indication: PRODUCT USED FOR UNKNOWN INDICATION
     Route: 065

REACTIONS (2)
  - Drug interaction [Unknown]
  - Atrioventricular block second degree [Recovered/Resolved]
